FAERS Safety Report 23608028 (Version 2)
Quarter: 2024Q2

REPORT INFORMATION
  Report Type: Report from Study
  Country: US (occurrence: US)
  Receive Date: 20240307
  Receipt Date: 20240405
  Transmission Date: 20240715
  Serious: Yes (Hospitalization)
  Sender: FDA-Public Use
  Company Number: US-Eisai-EC-2024-160847

PATIENT
  Age: 66 Year
  Sex: Female
  Weight: 67.4 kg

DRUGS (2)
  1. LENVATINIB [Suspect]
     Active Substance: LENVATINIB
     Indication: Ovarian cancer stage III
     Route: 048
     Dates: start: 20240122, end: 20240217
  2. PEMBROLIZUMAB [Suspect]
     Active Substance: PEMBROLIZUMAB
     Indication: Ovarian cancer stage III
     Dates: start: 20231023, end: 20240227

REACTIONS (3)
  - Hypertension [Unknown]
  - Intracranial aneurysm [Unknown]
  - Pneumonia [Unknown]

NARRATIVE: CASE EVENT DATE: 20240218
